FAERS Safety Report 4797144-1 (Version None)
Quarter: 2005Q3

REPORT INFORMATION
  Report Type: 
  Country: None (occurrence: None)
  Receive Date: 20050916
  Receipt Date: 20050422
  Transmission Date: 20060218
  Serious: Yes (Other)
  Sender: FDA-Public Use
  Company Number: US-JNJFOC-20050406144

PATIENT
  Age: 37 Year
  Sex: Female

DRUGS (2)
  1. TOPAMAX [Suspect]
     Indication: CONVULSION
     Dosage: 50 + 75 MG, 2 IN 1 DAY, ORAL
     Route: 048
     Dates: start: 20050301
  2. CYTOMEL [Concomitant]

REACTIONS (6)
  - DEPRESSION [None]
  - DISTURBANCE IN ATTENTION [None]
  - PNEUMONIA PRIMARY ATYPICAL [None]
  - RESPIRATORY TRACT INFECTION [None]
  - SUICIDAL IDEATION [None]
  - URINARY TRACT INFECTION [None]
